FAERS Safety Report 6532660-3 (Version None)
Quarter: 2009Q4

REPORT INFORMATION
  Report Type: 
  Country: None (occurrence: None)
  Receive Date: 20091231
  Receipt Date: 20091215
  Transmission Date: 20100525
  Serious: Yes (Life-Threatening, Hospitalization, Other)
  Sender: FDA-Public Use
  Company Number: AUR-APL-2009-01582

PATIENT
  Age: 55 Year
  Sex: Female

DRUGS (3)
  1. CITALOPRAM HYDROBROMIDE [Suspect]
     Indication: DEPRESSION
  2. METHYLENE BLUE [Suspect]
     Dosage: 7.5MG/KG
  3. BUPROPION [Concomitant]

REACTIONS (19)
  - AGITATION [None]
  - BLINDNESS CORTICAL [None]
  - BLOOD PARATHYROID HORMONE INCREASED [None]
  - CHOREA [None]
  - CONFUSIONAL STATE [None]
  - DISORIENTATION [None]
  - EYE MOVEMENT DISORDER [None]
  - HYPERCALCAEMIA [None]
  - HYPERHIDROSIS [None]
  - HYPERREFLEXIA [None]
  - HYPERTENSION [None]
  - LIVER FUNCTION TEST ABNORMAL [None]
  - MYDRIASIS [None]
  - OPSOCLONUS MYOCLONUS [None]
  - PARATHYROID TUMOUR BENIGN [None]
  - SPEECH DISORDER [None]
  - TACHYCARDIA [None]
  - URINE CALCIUM INCREASED [None]
  - VISION BLURRED [None]
